FAERS Safety Report 4452793-5 (Version None)
Quarter: 2004Q3

REPORT INFORMATION
  Report Type: 
  Country: None (occurrence: None)
  Receive Date: 20040916
  Receipt Date: 20040902
  Transmission Date: 20050211
  Serious: Yes (Death)
  Sender: FDA-Public Use
  Company Number: 2004-DE-04648GD

PATIENT
  Age: 67 Year
  Sex: Female

DRUGS (11)
  1. MELOXICAM [Suspect]
     Indication: RHEUMATOID ARTHRITIS
  2. METHOTREXATE [Suspect]
     Indication: RHEUMATOID ARTHRITIS
     Dosage: 10 MG/WEEK (NR)
  3. LEFLUNOMIDE [Suspect]
     Indication: RHEUMATOID ARTHRITIS
     Dosage: 20 MG (NR)
  4. HYDROXYCHLOROQUINE SULFATE [Suspect]
     Indication: RHEUMATOID ARTHRITIS
     Dosage: 200 MG (NR)
  5. PREDNISOLONE [Concomitant]
  6. ESOMEPRAZOLE (ESOMEPRAZOLE) (NR) [Concomitant]
  7. ATENOLOL (ATENOLOL) (NR) [Concomitant]
  8. FUROSEMIDE [Concomitant]
  9. OXYCODONE (OXYCODONE) (NR) [Concomitant]
  10. DOMPERIDONE (DOMPERIDONE) (NR) [Concomitant]
  11. DOTHIEPIN (DOSULEPIN) (NR) [Concomitant]

REACTIONS (11)
  - ANAEMIA OF CHRONIC DISEASE [None]
  - BLOOD IRON DECREASED [None]
  - DEHYDRATION [None]
  - DRUG TOXICITY [None]
  - OEDEMA PERIPHERAL [None]
  - PANCYTOPENIA [None]
  - PNEUMONIA [None]
  - RENAL FAILURE ACUTE [None]
  - RESPIRATORY FAILURE [None]
  - SEPTIC SHOCK [None]
  - SERUM FERRITIN INCREASED [None]
